FAERS Safety Report 5025748-X (Version None)
Quarter: 2006Q2

REPORT INFORMATION
  Report Type: 
  Country: None (occurrence: None)
  Receive Date: 20060427
  Receipt Date: 20051116
  Transmission Date: 20061013
  Serious: Yes (Other)
  Sender: FDA-Public Use
  Company Number: 2005157620

PATIENT
  Age: 48 Year
  Sex: Male
  Weight: 78.0187 kg

DRUGS (3)
  1. ZITHROMAX [Suspect]
     Indication: BRONCHITIS
     Dosage: 500 MG (250 MG, EVERY DAY), ORAL
     Route: 048
     Dates: start: 20051101, end: 20051101
  2. ZITHROMAX [Suspect]
     Indication: UPPER RESPIRATORY TRACT INFECTION
     Dosage: 500 MG (250 MG, EVERY DAY), ORAL
     Route: 048
     Dates: start: 20051101, end: 20051101
  3. ALBUTEROL [Concomitant]

REACTIONS (4)
  - JAUNDICE [None]
  - MALAISE [None]
  - OEDEMA PERIPHERAL [None]
  - RENAL FAILURE [None]
